FAERS Safety Report 5919375-7 (Version None)
Quarter: 2008Q4

REPORT INFORMATION
  Report Type: 
  Country: None (occurrence: None)
  Receive Date: 20081015
  Receipt Date: 20081006
  Transmission Date: 20090506
  Serious: Yes (Other)
  Sender: FDA-Public Use
  Company Number: B0536476A

PATIENT
  Age: 87 Year
  Sex: Female

DRUGS (1)
  1. VENTOLIN [Suspect]
     Indication: ASTHMA
     Route: 055
     Dates: start: 19720101

REACTIONS (3)
  - ANGER [None]
  - ANXIETY [None]
  - DRUG DEPENDENCE [None]
